FAERS Safety Report 17893812 (Version 2)
Quarter: 2025Q2

REPORT INFORMATION
  Report Type: Spontaneous
  Country: ES (occurrence: ES)
  Receive Date: 20200615
  Receipt Date: 20250630
  Transmission Date: 20250717
  Serious: Yes (Death, Hospitalization, Other)
  Sender: AUROBINDO
  Company Number: ES-AEMPS-639295

PATIENT
  Age: 60 Year
  Sex: Female

DRUGS (3)
  1. ACETAMINOPHEN [Interacting]
     Active Substance: ACETAMINOPHEN
     Indication: Suicide attempt
     Route: 048
     Dates: start: 20200517, end: 20200517
  2. CLORAZEPATE DIPOTASSIUM [Interacting]
     Active Substance: CLORAZEPATE DIPOTASSIUM
     Indication: Suicide attempt
     Route: 048
     Dates: start: 20200517, end: 20200517
  3. TIAPRIDE HYDROCHLORIDE [Interacting]
     Active Substance: TIAPRIDE HYDROCHLORIDE
     Indication: Suicide attempt
     Route: 048
     Dates: start: 20200517, end: 20200517

REACTIONS (6)
  - Acute hepatic failure [Fatal]
  - Bradycardia [Fatal]
  - Depressed level of consciousness [Fatal]
  - Metabolic acidosis [Fatal]
  - Hypotension [Fatal]
  - Intentional overdose [Recovered/Resolved]

NARRATIVE: CASE EVENT DATE: 20200517
